FAERS Safety Report 8140882 (Version 5)
Quarter: 2016Q4

REPORT INFORMATION
  Report Type: Report from Study
  Country: CA (occurrence: CA)
  Receive Date: 20110916
  Receipt Date: 20161024
  Transmission Date: 20170207
  Serious: Yes (Hospitalization, Other)
  Sender: FDA-Public Use
  Company Number: PHHO2011CA14015

PATIENT
  Age: 1 Year
  Sex: Female
  Weight: 11.31 kg

DRUGS (12)
  1. NACL [Concomitant]
     Active Substance: SODIUM CHLORIDE
     Indication: ENZYME SUPPLEMENTATION
     Dosage: 0.625 ML, BID
     Dates: start: 20100317
  2. TRI-VI-SOL [Concomitant]
     Indication: VITAMIN SUPPLEMENTATION
     Dosage: UNK
     Dates: start: 200911
  3. CREON [Concomitant]
     Active Substance: PANCRELIPASE AMYLASE\PANCRELIPASE LIPASE\PANCRELIPASE PROTEASE
     Indication: ENZYME SUPPLEMENTATION
     Dosage: 3-4 CAPS TID
     Dates: start: 20100927
  4. MOTILIUM [Concomitant]
     Active Substance: DOMPERIDONE
     Indication: PROPHYLAXIS
     Dosage: 3 MG, UNK
     Route: 048
     Dates: start: 20100909
  5. DEXAMETHASONE. [Suspect]
     Active Substance: DEXAMETHASONE
     Dosage: 6.5 MG, DIE
     Route: 048
     Dates: start: 20110814, end: 20110816
  6. DEXAMETHASONE. [Suspect]
     Active Substance: DEXAMETHASONE
     Dosage: 6 MG, IX
     Route: 048
     Dates: start: 20110817, end: 20110817
  7. CEPHALEXIN. [Concomitant]
     Active Substance: CEPHALEXIN
     Indication: PROPHYLAXIS
     Dosage: 250 MG, TID
     Route: 048
     Dates: start: 20110817, end: 20110827
  8. TOBRAMYCIN INHALATION POWDER [Suspect]
     Active Substance: TOBRAMYCIN
     Indication: CYSTIC FIBROSIS
     Dosage: UNK
     Route: 055
     Dates: start: 20100611, end: 20100708
  9. EPINEPHRINE. [Suspect]
     Active Substance: EPINEPHRINE
     Dosage: 5 ML 1/600 NEB PRN
     Route: 065
     Dates: start: 20110814, end: 20110815
  10. VITAMIN E [Concomitant]
     Active Substance: .ALPHA.-TOCOPHEROL
     Indication: VITAMIN SUPPLEMENTATION
     Dosage: UNK
     Dates: start: 200911
  11. PLACEBO [Suspect]
     Active Substance: UNSPECIFIED INGREDIENT
     Indication: CYSTIC FIBROSIS
     Dosage: UNK
     Route: 055
  12. TEMPRA [Concomitant]
     Active Substance: ACETAMINOPHEN
     Indication: PYREXIA

REACTIONS (2)
  - Croup infectious [Recovered/Resolved]
  - Hypertension [Recovered/Resolved]

NARRATIVE: CASE EVENT DATE: 20110814
